FAERS Safety Report 10248659 (Version 1)
Quarter: 2014Q2

REPORT INFORMATION
  Report Type: Spontaneous
  Country: NL (occurrence: None)
  Receive Date: 20140618
  Receipt Date: 20140618
  Transmission Date: 20141212
  Serious: Yes (Death)
  Sender: FDA-Public Use
  Company Number: B1001915A

PATIENT
  Sex: Male
  Weight: 89.81 kg

DRUGS (2)
  1. PAROXETINE HYDROCHLORIDE [Suspect]
     Indication: ANXIETY DISORDER
     Dosage: 20 MG PER DAY ORAL
     Route: 048
     Dates: start: 20140508
  2. OXAZEPAM [Suspect]
     Indication: ANXIETY DISORDER
     Route: 048
     Dates: start: 20140508

REACTIONS (3)
  - Completed suicide [None]
  - Drug interaction [None]
  - Asphyxia [None]
